FAERS Safety Report 12608428 (Version 1)
Quarter: 2016Q3

REPORT INFORMATION
  Report Type: Spontaneous
  Country: RU (occurrence: RU)
  Receive Date: 20160729
  Receipt Date: 20160729
  Transmission Date: 20161109
  Serious: Yes (Hospitalization)
  Sender: FDA-Public Use
  Company Number: RU-ASTRAZENECA-2016SE80482

PATIENT
  Age: 24282 Day
  Sex: Male
  Weight: 80 kg

DRUGS (18)
  1. CEFTRIAXONE. [Concomitant]
     Active Substance: CEFTRIAXONE
     Indication: ACUTE CORONARY SYNDROME
     Dosage: 1.0G UNKNOWN
     Route: 040
     Dates: start: 20160225, end: 20160304
  2. SIBASONE [Concomitant]
     Indication: ACUTE CORONARY SYNDROME
     Dosage: 2.0ML INTERMITTENT
     Route: 040
     Dates: start: 20160224, end: 20160303
  3. ACTRAPID [Concomitant]
     Active Substance: INSULIN HUMAN
     Indication: GLUCOSE TOLERANCE IMPAIRED
     Dosage: AS NEEDED
     Route: 058
     Dates: start: 20160226, end: 20160304
  4. MORPHINE [Concomitant]
     Active Substance: MORPHINE
     Indication: ACUTE CORONARY SYNDROME
     Route: 040
     Dates: start: 20160714, end: 20160714
  5. LIDOCAINE. [Concomitant]
     Active Substance: LIDOCAINE
     Indication: VENTRICULAR FIBRILLATION
     Dosage: 80.0MG UNKNOWN
     Route: 040
     Dates: start: 20160224, end: 20160224
  6. HEPARIN [Concomitant]
     Active Substance: HEPARIN SODIUM
     Indication: ACUTE CORONARY SYNDROME
     Route: 040
     Dates: start: 20160714, end: 20160714
  7. VEROSPIRON [Concomitant]
     Active Substance: SPIRONOLACTONE
     Indication: ACUTE CORONARY SYNDROME
     Dosage: 25 MG
     Route: 048
     Dates: start: 20160715, end: 20160720
  8. EGILOK [Concomitant]
     Active Substance: METOPROLOL TARTRATE
     Indication: ACUTE CORONARY SYNDROME
     Route: 048
     Dates: start: 20160714, end: 20160720
  9. LASYX [Concomitant]
     Dosage: 240.0MG UNKNOWN
     Route: 041
     Dates: start: 20160302, end: 20160304
  10. FUROSEMIDE. [Concomitant]
     Active Substance: FUROSEMIDE
     Indication: ACUTE CORONARY SYNDROME
     Dosage: 20 MG
     Route: 048
     Dates: start: 20160715, end: 20160720
  11. BRILINTA [Suspect]
     Active Substance: TICAGRELOR
     Indication: ACUTE CORONARY SYNDROME
     Route: 048
     Dates: start: 20160714
  12. CARDIOMAGNYL [Concomitant]
     Active Substance: ASPIRIN\MAGNESIUM HYDROXIDE
     Indication: ACUTE CORONARY SYNDROME
     Route: 048
     Dates: start: 20160714, end: 20160714
  13. ATORVASTATIN [Concomitant]
     Active Substance: ATORVASTATIN
     Indication: ACUTE CORONARY SYNDROME
     Dosage: 80 MG
     Route: 048
     Dates: start: 20160714, end: 20160720
  14. CORDARONE [Concomitant]
     Active Substance: AMIODARONE HYDROCHLORIDE
     Indication: ACUTE CORONARY SYNDROME
  15. CERAXONE [Concomitant]
     Indication: CEREBROVASCULAR DISORDER
     Dosage: 1000.0MG UNKNOWN
     Route: 041
     Dates: start: 20160229, end: 20160304
  16. LOSAP [Concomitant]
     Indication: ACUTE CORONARY SYNDROME
     Route: 048
     Dates: start: 20160229, end: 20160229
  17. CARDIASK [Concomitant]
     Active Substance: ASPIRIN
     Indication: ACUTE CORONARY SYNDROME
     Dosage: 100 MG
     Route: 048
     Dates: start: 20160715, end: 20160720
  18. ENALAPRIL [Concomitant]
     Active Substance: ENALAPRIL
     Indication: ACUTE CORONARY SYNDROME
     Route: 048
     Dates: start: 20160714, end: 20160720

REACTIONS (1)
  - Vascular stent thrombosis [Unknown]

NARRATIVE: CASE EVENT DATE: 20160720
